FAERS Safety Report 15276549 (Version 1)
Quarter: 2018Q3

REPORT INFORMATION
  Report Type: Spontaneous
  Country: US (occurrence: US)
  Receive Date: 20180729
  Receipt Date: 20180729
  Transmission Date: 20181010
  Serious: No
  Sender: FDA-Public Use
  Company Number: None

PATIENT
  Age: 19 Year
  Sex: Female
  Weight: 54.9 kg

DRUGS (3)
  1. SPRINTEC [Suspect]
     Active Substance: ETHINYL ESTRADIOL\NORGESTIMATE
     Indication: CONTRACEPTION
     Route: 048
     Dates: start: 20180504, end: 20180726
  2. PROBIOTICS [Concomitant]
     Active Substance: PROBIOTICS NOS
  3. WOMEN^S MULTIVITAMIN [Concomitant]

REACTIONS (3)
  - Nausea [None]
  - Dizziness [None]
  - Vulvovaginal mycotic infection [None]
